FAERS Safety Report 9349744 (Version 1)
Quarter: 2013Q2

REPORT INFORMATION
  Report Type: Spontaneous
  Country: ES (occurrence: ES)
  Receive Date: 20130614
  Receipt Date: 20130614
  Transmission Date: 20140414
  Serious: Yes (Death, Hospitalization)
  Sender: FDA-Public Use
  Company Number: ES-BAYER-2013-069782

PATIENT
  Age: 85 Year
  Sex: Female

DRUGS (6)
  1. ADIRO 300 [Suspect]
     Dosage: 300 MG, QD
     Route: 048
     Dates: start: 20120702, end: 20121002
  2. IBUPROFENO [Suspect]
     Indication: PAIN
     Dosage: 600 MG, BID
     Route: 048
     Dates: start: 20120831, end: 20120907
  3. PAROXETIN [Suspect]
     Indication: DEPRESSION
     Dosage: 20 MG, QD
     Route: 048
     Dates: start: 20120111, end: 20121002
  4. LUMIGAN [Concomitant]
     Indication: GLAUCOMA
     Route: 047
  5. AZOPT [Concomitant]
     Route: 047
     Dates: start: 20120111
  6. ALPHAGAN [Concomitant]
     Route: 047
     Dates: start: 20120111

REACTIONS (2)
  - Bone marrow failure [Not Recovered/Not Resolved]
  - Respiratory tract infection [None]
